FAERS Safety Report 15954097 (Version 1)
Quarter: 2019Q1

REPORT INFORMATION
  Report Type: Spontaneous
  Country: BR (occurrence: BR)
  Receive Date: 20190212
  Receipt Date: 20190212
  Transmission Date: 20190417
  Serious: Yes (Other)
  Sender: FDA-Public Use
  Company Number: BR-BIOMARINAP-BR-2019-121908

PATIENT
  Sex: Male
  Weight: 18.6 kg

DRUGS (1)
  1. ALDURAZYME [Suspect]
     Active Substance: LARONIDASE
     Indication: MUCOPOLYSACCHARIDOSIS
     Dosage: UNK, QOW
     Route: 065
     Dates: start: 20080101

REACTIONS (7)
  - Nervous system disorder [Unknown]
  - Asthenia [Unknown]
  - Cardiomegaly [Unknown]
  - Tracheostomy malfunction [Unknown]
  - Agitation [Unknown]
  - Blindness [Unknown]
  - Movement disorder [Unknown]
